FAERS Safety Report 8064739-1 (Version None)
Quarter: 2012Q1

REPORT INFORMATION
  Report Type: 
  Country: None (occurrence: None)
  Receive Date: 20120124
  Receipt Date: 20120116
  Transmission Date: 20120608
  Serious: Yes (Death, Hospitalization, Other)
  Sender: FDA-Public Use
  Company Number: US-AMGEN-USASP2012002963

PATIENT
  Age: 65 Year
  Sex: Female

DRUGS (1)
  1. ENBREL [Suspect]
     Indication: PSORIASIS
     Dosage: 50 MG, QWK
     Dates: start: 20081001, end: 20090215

REACTIONS (12)
  - HIP FRACTURE [None]
  - TACHYCARDIA [None]
  - SYNCOPE [None]
  - DECREASED APPETITE [None]
  - WEIGHT DECREASED [None]
  - ASTHENIA [None]
  - RENAL FAILURE [None]
  - MULTI-ORGAN FAILURE [None]
  - HEPATIC FAILURE [None]
  - FALL [None]
  - BEDRIDDEN [None]
  - DECUBITUS ULCER [None]
